FAERS Safety Report 6114240-7 (Version None)
Quarter: 2009Q1

REPORT INFORMATION
  Report Type: 
  Country: None (occurrence: None)
  Receive Date: 20090312
  Receipt Date: 20080830
  Transmission Date: 20090719
  Serious: No
  Sender: FDA-Public Use
  Company Number: US-ABBOTT-08P-163-0473530-00

PATIENT
  Sex: Female
  Weight: 68.1 kg

DRUGS (2)
  1. DEPAKOTE [Suspect]
     Indication: MIGRAINE
     Route: 048
     Dates: start: 20080401, end: 20080701
  2. ESCITALOPRAM OXALATE [Concomitant]
     Indication: AGITATION
     Route: 048
     Dates: start: 20080101

REACTIONS (1)
  - ALOPECIA [None]
